FAERS Safety Report 22259584 (Version 16)
Quarter: 2025Q1

REPORT INFORMATION
  Report Type: Spontaneous
  Country: US (occurrence: US)
  Receive Date: 20230427
  Receipt Date: 20250305
  Transmission Date: 20250409
  Serious: Yes (Hospitalization, Other)
  Sender: VERTEX
  Company Number: US-VERTEX PHARMACEUTICALS-2023-005962

PATIENT

DRUGS (4)
  1. TRIKAFTA [Suspect]
     Active Substance: ELEXACAFTOR\IVACAFTOR\TEZACAFTOR
     Indication: Cystic fibrosis
     Route: 048
  2. TRIKAFTA [Suspect]
     Active Substance: ELEXACAFTOR\IVACAFTOR\TEZACAFTOR
     Route: 048
  3. URSODIOL [Concomitant]
     Active Substance: URSODIOL
  4. CREON [Concomitant]
     Active Substance: PANCRELIPASE AMYLASE\PANCRELIPASE LIPASE\PANCRELIPASE PROTEASE

REACTIONS (22)
  - Hepatic enzyme increased [Unknown]
  - Diarrhoea [Unknown]
  - Spinal cord neoplasm [Unknown]
  - Pancreatitis chronic [Recovering/Resolving]
  - Lung transplant [Unknown]
  - Therapeutic embolisation [Unknown]
  - Pulmonary haemorrhage [Unknown]
  - Hepatic failure [Recovered/Resolved]
  - Product dose omission issue [Unknown]
  - Tachyphrenia [Unknown]
  - Insomnia [Unknown]
  - Gallbladder disorder [Unknown]
  - Yellow skin [Unknown]
  - Pulmonary function test abnormal [Unknown]
  - Pneumonia [Unknown]
  - Complication associated with device [Unknown]
  - Pseudomonas infection [Unknown]
  - Liver disorder [Recovered/Resolved]
  - Lung disorder [Unknown]
  - Mycobacterium avium complex infection [Not Recovered/Not Resolved]
  - Weight decreased [Unknown]
  - Acne [Unknown]
